FAERS Safety Report 5861682-0 (Version None)
Quarter: 2008Q3

REPORT INFORMATION
  Report Type: 
  Country: None (occurrence: None)
  Receive Date: 20080827
  Receipt Date: 20080710
  Transmission Date: 20090109
  Serious: No
  Sender: FDA-Public Use
  Company Number: US-ABBOTT-08P-163-0458809-00

PATIENT
  Sex: Female
  Weight: 78.996 kg

DRUGS (2)
  1. COATED PDS [Suspect]
     Indication: BLOOD CHOLESTEROL INCREASED
     Route: 048
     Dates: start: 20080609, end: 20080619
  2. ESOMEPRAZOLE MAGNESIUM [Concomitant]
     Indication: IRRITABLE BOWEL SYNDROME
     Route: 048

REACTIONS (3)
  - ALOPECIA [None]
  - CONSTIPATION [None]
  - FEELING ABNORMAL [None]
